FAERS Safety Report 4888029-0 (Version None)
Quarter: 2006Q1

REPORT INFORMATION
  Report Type: 
  Country: None (occurrence: None)
  Receive Date: 20060123
  Receipt Date: 20041013
  Transmission Date: 20060701
  Serious: Yes (Other)
  Sender: FDA-Public Use
  Company Number: US-MERCK-0410USA02190

PATIENT
  Age: 49 Year
  Sex: Female
  Weight: 57 kg

DRUGS (7)
  1. VIOXX [Suspect]
     Indication: SHOULDER PAIN
     Route: 048
     Dates: start: 19990101, end: 20040901
  2. VIOXX [Suspect]
     Route: 048
     Dates: start: 19990101, end: 20040901
  3. VIOXX [Suspect]
     Indication: NECK PAIN
     Route: 048
     Dates: start: 19990101, end: 20040901
  4. VIOXX [Suspect]
     Route: 048
     Dates: start: 19990101, end: 20040901
  5. PROZAC [Concomitant]
     Indication: DEPRESSION
     Route: 065
     Dates: start: 19910101
  6. PROZAC [Concomitant]
     Indication: MENOPAUSE
     Route: 065
     Dates: start: 19910101
  7. PROSOM [Concomitant]
     Indication: DEPRESSION
     Route: 065

REACTIONS (23)
  - ALCOHOL USE [None]
  - BASAL CELL CARCINOMA [None]
  - BLISTER [None]
  - BUNION [None]
  - DIVERTICULUM [None]
  - DIZZINESS [None]
  - DRUG ABUSER [None]
  - FOOT DEFORMITY [None]
  - HYPERTENSION [None]
  - HYPOAESTHESIA [None]
  - INTERVERTEBRAL DISC PROTRUSION [None]
  - OEDEMA PERIPHERAL [None]
  - OSTEOARTHRITIS [None]
  - OVARIAN FAILURE [None]
  - PAPILLOMA VIRAL INFECTION [None]
  - PARAESTHESIA [None]
  - PERIPHERAL VASCULAR DISORDER [None]
  - ROTATOR CUFF SYNDROME [None]
  - SKIN DISCOLOURATION [None]
  - SKIN LACERATION [None]
  - SQUAMOUS CELL CARCINOMA OF SKIN [None]
  - TENDONITIS [None]
  - WEIGHT INCREASED [None]
